FAERS Safety Report 9285716 (Version 3)
Quarter: 2013Q2

REPORT INFORMATION
  Report Type: Spontaneous
  Country: US (occurrence: US)
  Receive Date: 20130513
  Receipt Date: 20130619
  Transmission Date: 20140414
  Serious: No
  Sender: FDA-Public Use
  Company Number: US-PFIZER INC-2013144994

PATIENT
  Age: 69 Year
  Sex: Female
  Weight: 54.4 kg

DRUGS (3)
  1. ESTRING [Suspect]
     Indication: OESTROGEN DEFICIENCY
     Dosage: UNK
     Route: 067
     Dates: start: 20130503, end: 20130505
  2. ESTRING [Suspect]
     Indication: BLADDER DISORDER
  3. PRAVASTATIN [Concomitant]
     Indication: BLOOD CHOLESTEROL INCREASED
     Dosage: 20 MG, 1X/DAY

REACTIONS (3)
  - Vulvovaginal discomfort [Unknown]
  - Vulvovaginal pain [Unknown]
  - Insomnia [Unknown]
